FAERS Safety Report 5649061-2 (Version None)
Quarter: 2008Q1

REPORT INFORMATION
  Report Type: 
  Country: None (occurrence: None)
  Receive Date: 20080229
  Receipt Date: 20080222
  Transmission Date: 20080703
  Serious: Yes (Death)
  Sender: FDA-Public Use
  Company Number: DSU02008-00265

PATIENT
  Age: 80 Year
  Sex: Female

DRUGS (1)
  1. WELCHOL [Suspect]
     Indication: HYPERCHOLESTEROLAEMIA
     Dosage: PER ORAL
     Route: 048
     Dates: start: 20080201

REACTIONS (1)
  - DEATH [None]
